FAERS Safety Report 20213018 (Version 1)
Quarter: 2021Q4

REPORT INFORMATION
  Report Type: Spontaneous
  Country: US (occurrence: US)
  Receive Date: 20211221
  Receipt Date: 20211221
  Transmission Date: 20220303
  Serious: No
  Sender: FDA-Public Use
  Company Number: US-SA-SAC20211215001384

PATIENT
  Age: 68 Year
  Sex: Male

DRUGS (8)
  1. DUPIXENT [Suspect]
     Active Substance: DUPILUMAB
     Indication: Nasal polyps
     Dosage: 300 MG,QOW
     Route: 058
     Dates: start: 20210524, end: 2021
  2. PENICILLIN V POTASSIUM [Concomitant]
     Active Substance: PENICILLIN V POTASSIUM
     Dosage: 30MG
  3. CODEINE SULFATE [Concomitant]
     Active Substance: CODEINE SULFATE
  4. ACETAMINOPHEN [Concomitant]
     Active Substance: ACETAMINOPHEN
  5. IBUPROFEN [Concomitant]
     Active Substance: IBUPROFEN
  6. ASPIRIN [Concomitant]
     Active Substance: ASPIRIN
     Dosage: 325MG
  7. SULFAMETHOXAZOLE [Concomitant]
     Active Substance: SULFAMETHOXAZOLE
  8. IODINE TINCTURE [IODINE] [Concomitant]
     Dosage: UNK

REACTIONS (2)
  - Drug ineffective [Unknown]
  - Product use in unapproved indication [Unknown]

NARRATIVE: CASE EVENT DATE: 20210101
